FAERS Safety Report 8188727-X (Version None)
Quarter: 2012Q1

REPORT INFORMATION
  Report Type: 
  Country: None (occurrence: None)
  Receive Date: 20120306
  Receipt Date: 20120302
  Transmission Date: 20120608
  Serious: Yes (Other)
  Sender: FDA-Public Use
  Company Number: CHPA2012US004213

PATIENT
  Age: 89 Year
  Sex: Male

DRUGS (1)
  1. VOLTAREN [Suspect]
     Indication: PAIN
     Dosage: UNK, BID
     Route: 061
     Dates: start: 20110101

REACTIONS (3)
  - OFF LABEL USE [None]
  - DRUG DEPENDENCE [None]
  - THERAPEUTIC RESPONSE UNEXPECTED [None]
